FAERS Safety Report 23937131 (Version 1)
Quarter: 2024Q2

REPORT INFORMATION
  Report Type: Spontaneous
  Country: CA (occurrence: CA)
  Receive Date: 20240604
  Receipt Date: 20240604
  Transmission Date: 20240716
  Serious: Yes (Other)
  Sender: FDA-Public Use
  Company Number: CA-PFIZER INC-202400181886

PATIENT
  Age: 83 Year
  Sex: Female

DRUGS (2)
  1. VYNDAQEL [Suspect]
     Active Substance: TAFAMIDIS MEGLUMINE
     Indication: Cardiac amyloidosis
     Dosage: 80 MG, 1X/DAY
     Route: 048
     Dates: start: 20230809
  2. ELIQUIS [Concomitant]
     Active Substance: APIXABAN
     Dosage: 5 MG, DAILY
     Route: 048

REACTIONS (1)
  - Atrial fibrillation [Unknown]
